FAERS Safety Report 8425242-X (Version None)
Quarter: 2012Q2

REPORT INFORMATION
  Report Type: 
  Country: None (occurrence: None)
  Receive Date: 20120529
  Receipt Date: 20120514
  Transmission Date: 20120825
  Serious: Yes (Hospitalization)
  Sender: FDA-Public Use
  Company Number: 20090805CINRY1067

PATIENT
  Age: 32 Year
  Sex: Female
  Weight: 68.4932 kg

DRUGS (8)
  1. PERCOCET [Concomitant]
  2. FLUOXETINE [Concomitant]
  3. CINRYZE [Suspect]
     Indication: PROPHYLAXIS
     Dosage: (1000 UNIT, 3 IN 1 WK), INTRAVENOUS
     Route: 042
     Dates: start: 20090122
  4. CINRYZE [Suspect]
     Indication: HEREDITARY ANGIOEDEMA
     Dosage: (1000 UNIT, 3 IN 1 WK), INTRAVENOUS
     Route: 042
     Dates: start: 20090122
  5. OXYCODONE SUSTAINED RELEASE (OXYCODONE HYDROCHLORIDE) [Concomitant]
  6. PHENERGAN [Concomitant]
  7. CLONAZEPAM [Concomitant]
  8. YASMIN [Concomitant]

REACTIONS (4)
  - PRURITUS [None]
  - PAIN IN EXTREMITY [None]
  - OEDEMA PERIPHERAL [None]
  - DEEP VEIN THROMBOSIS [None]
